FAERS Safety Report 7943010-X (Version None)
Quarter: 2011Q4

REPORT INFORMATION
  Report Type: 
  Country: None (occurrence: None)
  Receive Date: 20111128
  Receipt Date: 20111117
  Transmission Date: 20120403
  Serious: Yes (Other)
  Sender: FDA-Public Use
  Company Number: US-ACTELION-A-US2010-33874

PATIENT

DRUGS (2)
  1. TRACLEER [Suspect]
     Indication: PULMONARY ARTERIAL HYPERTENSION
     Route: 048
     Dates: start: 20090629
  2. COUMADIN [Concomitant]

REACTIONS (5)
  - NASAL CONGESTION [None]
  - HEADACHE [None]
  - CEREBROVASCULAR ACCIDENT [None]
  - BURNING SENSATION [None]
  - MIGRAINE [None]
